FAERS Safety Report 12446042 (Version 1)
Quarter: 2016Q2

REPORT INFORMATION
  Report Type: Spontaneous
  Country: US (occurrence: US)
  Receive Date: 20160608
  Receipt Date: 20160608
  Transmission Date: 20160815
  Serious: Yes (Other)
  Sender: FDA-Public Use
  Company Number: US-AMGEN-USASP2016070682

PATIENT
  Age: 87 Year
  Sex: Female

DRUGS (2)
  1. PROLIA [Suspect]
     Active Substance: DENOSUMAB
     Indication: BONE LOSS
     Dosage: UNK, UNK
     Route: 065
  2. PROLIA [Suspect]
     Active Substance: DENOSUMAB
     Indication: GINGIVAL DISORDER

REACTIONS (4)
  - Off label use [Unknown]
  - Radius fracture [Unknown]
  - Wrist fracture [Unknown]
  - Drug effect incomplete [Unknown]
